FAERS Safety Report 4758513-9 (Version None)
Quarter: 2005Q3

REPORT INFORMATION
  Report Type: 
  Country: None (occurrence: None)
  Receive Date: 20050830
  Receipt Date: 20050830
  Transmission Date: 20060218
  Serious: Yes (Life-Threatening, Hospitalization, Disabling)
  Sender: FDA-Public Use
  Company Number: None

PATIENT
  Age: 68 Year
  Sex: Female
  Weight: 54.4316 kg

DRUGS (2)
  1. ZOCOR [Suspect]
     Indication: BLOOD CHOLESTEROL INCREASED
     Dosage: 80MG  QD  PO
     Route: 048
     Dates: start: 20040511, end: 20040514
  2. GERMFIBOZINE [Suspect]
     Dosage: 2 PILLS   QD   PO
     Route: 048

REACTIONS (1)
  - RHABDOMYOLYSIS [None]
